FAERS Safety Report 5755735-5 (Version None)
Quarter: 2008Q2

REPORT INFORMATION
  Report Type: 
  Country: None (occurrence: None)
  Receive Date: 20080530
  Receipt Date: 20080530
  Transmission Date: 20081010
  Serious: Yes (Other)
  Sender: FDA-Public Use
  Company Number: None

PATIENT
  Age: 65 Year
  Sex: Female

DRUGS (1)
  1. VARENICLINE [Suspect]
     Dosage: 1 MG BID PO
     Route: 048
     Dates: start: 20071101

REACTIONS (5)
  - ABNORMAL DREAMS [None]
  - AGITATION [None]
  - ILL-DEFINED DISORDER [None]
  - NAUSEA [None]
  - VOMITING [None]
